FAERS Safety Report 10445729 (Version 1)
Quarter: 2014Q3

REPORT INFORMATION
  Report Type: Spontaneous
  Country: GB (occurrence: GB)
  Receive Date: 20140910
  Receipt Date: 20140910
  Transmission Date: 20150326
  Serious: Yes (Hospitalization, Other)
  Sender: FDA-Public Use
  Company Number: GB-TEVA-506610ISR

PATIENT
  Age: 75 Year
  Sex: Female

DRUGS (11)
  1. BENDROFLUMETHIAZIDE [Suspect]
     Active Substance: BENDROFLUMETHIAZIDE
     Dosage: 2.5 MILLIGRAM DAILY;
     Route: 048
     Dates: end: 20120813
  2. CLOPIDOGREL [Concomitant]
     Active Substance: CLOPIDOGREL BISULFATE
     Dosage: 75 MILLIGRAM DAILY;
  3. BISOPROLOL [Concomitant]
     Active Substance: BISOPROLOL
     Dosage: 5 MILLIGRAM DAILY;
  4. RAMIPRIL. [Suspect]
     Active Substance: RAMIPRIL
     Dosage: 10 MILLIGRAM DAILY;
     Route: 048
     Dates: end: 20120813
  5. ATORVASTATIN [Concomitant]
     Active Substance: ATORVASTATIN
     Dosage: AT NIGHT.
  6. COCODAMOL [Concomitant]
     Active Substance: ACETAMINOPHEN\CODEINE PHOSPHATE
  7. NITRAZEPAM [Concomitant]
     Active Substance: NITRAZEPAM
  8. ISOSORBIDE MONONITRATE. [Concomitant]
     Active Substance: ISOSORBIDE MONONITRATE
     Dosage: 90 MILLIGRAM DAILY; MODIFIED RELEASE. TAKEN EVERY MORNING
  9. GTN [Concomitant]
     Active Substance: NITROGLYCERIN
  10. HUMULIN NOS [Concomitant]
     Active Substance: INSULIN HUMAN
     Dosage: 38 IU (INTERNATIONAL UNIT) DAILY; 20IU IN AM AND 18 AT TEATIME.
  11. RANITIDINE [Concomitant]
     Active Substance: RANITIDINE\RANITIDINE HYDROCHLORIDE
     Dosage: 600 MILLIGRAM DAILY;

REACTIONS (3)
  - Urosepsis [Unknown]
  - Renal failure acute [Recovered/Resolved]
  - Hyponatraemia [Recovered/Resolved]

NARRATIVE: CASE EVENT DATE: 20120813
